FAERS Safety Report 23494002 (Version 1)
Quarter: 2024Q1

REPORT INFORMATION
  Report Type: Spontaneous
  Country: US (occurrence: None)
  Receive Date: 20240206
  Receipt Date: 20240206
  Transmission Date: 20240410
  Serious: Yes (Life-Threatening, Hospitalization)
  Sender: FDA-Public Use
  Company Number: None

PATIENT
  Age: 18 Month
  Sex: Male
  Weight: 11.25 kg

DRUGS (1)
  1. NYSTATIN [Suspect]
     Active Substance: NYSTATIN
     Dates: start: 20240205, end: 20240205

REACTIONS (4)
  - Dermatitis diaper [None]
  - Rash [None]
  - Haemorrhage [None]
  - Blister [None]

NARRATIVE: CASE EVENT DATE: 20240205
